FAERS Safety Report 4535391-4 (Version None)
Quarter: 2004Q4

REPORT INFORMATION
  Report Type: 
  Country: None (occurrence: None)
  Receive Date: 20041214
  Receipt Date: 20040804
  Transmission Date: 20050328
  Serious: No
  Sender: FDA-Public Use
  Company Number: USA040874441

PATIENT
  Age: 50 Year
  Sex: Male
  Weight: 84 kg

DRUGS (4)
  1. CIALIS [Suspect]
     Indication: ERECTILE DYSFUNCTION
     Dosage: 20 MG
     Dates: start: 20040731
  2. LIPITOR [Concomitant]
  3. ASPIRIN [Concomitant]
  4. TYLENOL [Concomitant]

REACTIONS (5)
  - ASTHENIA [None]
  - BACK PAIN [None]
  - MUSCULOSKELETAL STIFFNESS [None]
  - MYALGIA [None]
  - SLEEP DISORDER [None]
